FAERS Safety Report 7497112-5 (Version None)
Quarter: 2011Q2

REPORT INFORMATION
  Report Type: 
  Country: None (occurrence: None)
  Receive Date: 20110523
  Receipt Date: 20110513
  Transmission Date: 20111010
  Serious: Yes (Other)
  Sender: FDA-Public Use
  Company Number: PHHY2011GB40538

PATIENT
  Age: 81 Year
  Sex: Female

DRUGS (1)
  1. DOXYCYCLINE [Suspect]
     Indication: CELLULITIS
     Dosage: 100 MG, UNK
     Route: 048
     Dates: start: 20110502, end: 20110502

REACTIONS (2)
  - WHEEZING [None]
  - RESPIRATORY DISTRESS [None]
